FAERS Safety Report 8593153 (Version 4)
Quarter: 2014Q1

REPORT INFORMATION
  Report Type: Spontaneous
  Country: US (occurrence: US)
  Receive Date: 20120604
  Receipt Date: 20140122
  Transmission Date: 20141002
  Serious: Yes (Disabling)
  Sender: FDA-Public Use
  Company Number: US-ASTRAZENECA-2012SE35149

PATIENT
  Age: 65 Year
  Sex: Female
  Weight: 82.6 kg

DRUGS (27)
  1. NEXIUM [Suspect]
     Indication: DYSPEPSIA
     Route: 048
     Dates: start: 2004, end: 2012
  2. NEXIUM [Suspect]
     Indication: DYSPEPSIA
     Dosage: DAILY
     Route: 048
  3. NEXIUM [Suspect]
     Indication: DYSPEPSIA
     Route: 048
     Dates: start: 20070421
  4. NEXIUM [Suspect]
     Indication: DYSPEPSIA
     Route: 048
     Dates: start: 20100409
  5. PRILOSEC [Suspect]
     Route: 048
  6. PREVACID OTC [Concomitant]
  7. ZANTAC [Concomitant]
  8. TUMS [Concomitant]
  9. CYCLOBENZAPRINE [Concomitant]
     Indication: MUSCLE RELAXANT THERAPY
  10. GABAPENTIN [Concomitant]
     Indication: LIMB DEFORMITY
  11. GABAPENTIN [Concomitant]
     Indication: SLEEP DISORDER
  12. GABAPENTIN [Concomitant]
     Indication: HYPOAESTHESIA
  13. METOPROLOL [Concomitant]
     Indication: HYPERTENSION
  14. BENAZEPRIL HCTZ [Concomitant]
     Indication: BLOOD PRESSURE ABNORMAL
     Dosage: 20-25 MG DAILY
     Route: 048
  15. LORATADINE [Concomitant]
     Indication: SINUS DISORDER
  16. ATORVASTATIN [Concomitant]
     Indication: BLOOD CHOLESTEROL ABNORMAL
  17. NORCO [Concomitant]
     Indication: PAIN
  18. PSEUDOEPHEDRINE [Concomitant]
     Route: 048
     Dates: start: 20070328
  19. METFORMIN HCL [Concomitant]
     Route: 048
     Dates: start: 20070328
  20. ACTOS [Concomitant]
     Route: 048
     Dates: start: 20070328
  21. GLIPIZIDE [Concomitant]
     Route: 048
     Dates: start: 20070328
  22. METOPROLOL TARTRATE [Concomitant]
     Route: 048
     Dates: start: 20100504
  23. LIPITOR [Concomitant]
     Route: 048
     Dates: start: 20100501
  24. ZOLPIDEM TARTRATE [Concomitant]
     Route: 048
     Dates: start: 20100423
  25. FUROSEMIDE [Concomitant]
     Route: 048
     Dates: start: 20101215
  26. CARISOPRODOL [Concomitant]
     Route: 048
     Dates: start: 20101119
  27. ALENDRONATE SODIUM [Concomitant]

REACTIONS (13)
  - Arthropathy [Unknown]
  - Pain in extremity [Unknown]
  - Osteoporosis [Unknown]
  - Angina pectoris [Unknown]
  - Rib fracture [Unknown]
  - Spinal pain [Unknown]
  - Bone disorder [Unknown]
  - Fall [Unknown]
  - Osteogenesis imperfecta [Unknown]
  - Osteopenia [Unknown]
  - Spinal osteoarthritis [Unknown]
  - Foot fracture [Unknown]
  - Limb injury [Unknown]
